FAERS Safety Report 6559943-5 (Version None)
Quarter: 2010Q1

REPORT INFORMATION
  Report Type: 
  Country: None (occurrence: None)
  Receive Date: 20100129
  Receipt Date: 20090916
  Transmission Date: 20100710
  Serious: Yes (Hospitalization)
  Sender: FDA-Public Use
  Company Number: US-ABBOTT-09P-163-0597869-00

PATIENT
  Sex: Male
  Weight: 71.732 kg

DRUGS (5)
  1. HUMIRA [Suspect]
     Indication: RHEUMATOID ARTHRITIS
     Route: 058
     Dates: start: 20090301
  2. HUMIRA [Suspect]
     Route: 058
     Dates: start: 20090911
  3. UNKNOWN HYPERTENSIVE MED [Concomitant]
     Indication: HYPERTENSION
  4. UNKNOWN GASTRIC REFLUX MEDICATION [Concomitant]
     Indication: DRUG USE FOR UNKNOWN INDICATION
  5. UNKNOWN PAIN MED [Concomitant]
     Indication: DRUG USE FOR UNKNOWN INDICATION

REACTIONS (1)
  - RESPIRATORY TRACT INFECTION [None]
